FAERS Safety Report 8973380 (Version 1)
Quarter: 2012Q4

REPORT INFORMATION
  Report Type: 
  Country: FR (occurrence: FR)
  Receive Date: 20121218
  Receipt Date: 20121218
  Transmission Date: 20130627
  Serious: Yes (Hospitalization, Other)
  Sender: FDA-Public Use
  Company Number: FR-ELI_LILLY_AND_COMPANY-FR201210002174

PATIENT
  Age: 22 Year
  Sex: Male

DRUGS (6)
  1. ZYPADHERA [Suspect]
     Indication: SCHIZOAFFECTIVE DISORDER
     Dosage: 405 mg, monthly (1/M)
     Route: 030
     Dates: start: 20120911
  2. LOXAPAC [Concomitant]
     Indication: AGITATION
     Dosage: UNK, prn
  3. DEPAMIDE [Concomitant]
     Indication: PSYCHOTIC DISORDER
     Dosage: 300 mg, every 4 hrs
     Dates: start: 20120810
  4. SULFARLEM [Concomitant]
     Indication: DRY MOUTH
     Dosage: 3 DF, qd
     Dates: start: 20120810
  5. LEPTICUR [Concomitant]
     Indication: EXTRAPYRAMIDAL DISORDER
     Dosage: 10 mg, qd
     Dates: start: 20120811
  6. AVLOCARDYL [Concomitant]
     Indication: AKATHISIA
     Dosage: 40 mg, qd
     Dates: start: 20121004

REACTIONS (4)
  - Sedation [Recovered/Resolved]
  - Hypotension [Recovered/Resolved]
  - Unresponsive to stimuli [Recovered/Resolved]
  - Memory impairment [Recovered/Resolved]
